FAERS Safety Report 10241261 (Version 3)
Quarter: 2015Q1

REPORT INFORMATION
  Report Type: Spontaneous
  Country: US (occurrence: US)
  Receive Date: 20140617
  Receipt Date: 20150313
  Transmission Date: 20150720
  Serious: Yes (Disabling, Other)
  Sender: FDA-Public Use
  Company Number: US-009507513-1406USA007855

PATIENT
  Sex: Male
  Weight: 84.81 kg

DRUGS (3)
  1. VALTREX [Concomitant]
     Active Substance: VALACYCLOVIR HYDROCHLORIDE
     Indication: ORAL HERPES
     Dosage: UNK
     Dates: start: 2009, end: 2014
  2. PROPECIA [Suspect]
     Active Substance: FINASTERIDE
     Dosage: 0.5 MG, UNK
     Route: 048
     Dates: start: 20121120, end: 20121120
  3. PROPECIA [Suspect]
     Active Substance: FINASTERIDE
     Indication: ANDROGENETIC ALOPECIA
     Dosage: 1 MG, QD
     Route: 048
     Dates: start: 20121120

REACTIONS (48)
  - Anxiety [Not Recovered/Not Resolved]
  - Ejaculation disorder [Not Recovered/Not Resolved]
  - Nausea [Unknown]
  - Incoherent [Unknown]
  - Feeling abnormal [Unknown]
  - Testicular disorder [Unknown]
  - Sexual dysfunction [Not Recovered/Not Resolved]
  - Hypogonadism [Unknown]
  - Testicular hyperfunction [Unknown]
  - Herpes simplex [Unknown]
  - Peyronie^s disease [Unknown]
  - Testicular disorder [Unknown]
  - Visual impairment [Unknown]
  - Fatigue [Unknown]
  - Loss of consciousness [Recovering/Resolving]
  - Erectile dysfunction [Unknown]
  - Blood luteinising hormone decreased [Unknown]
  - Penile size reduced [Unknown]
  - Nipple disorder [Unknown]
  - Hair growth abnormal [Unknown]
  - Muscle atrophy [Unknown]
  - Cognitive disorder [Not Recovered/Not Resolved]
  - Libido decreased [Recovering/Resolving]
  - Hormone level abnormal [Unknown]
  - Blood follicle stimulating hormone decreased [Unknown]
  - Feeling abnormal [Not Recovered/Not Resolved]
  - Insomnia [Unknown]
  - Fatigue [Unknown]
  - Androgen deficiency [Unknown]
  - Depression [Not Recovered/Not Resolved]
  - Decreased appetite [Unknown]
  - Hypoaesthesia [Unknown]
  - Blood follicle stimulating hormone decreased [Unknown]
  - Secondary hypogonadism [Unknown]
  - Ejaculation failure [Not Recovered/Not Resolved]
  - Blood testosterone decreased [Unknown]
  - Vomiting [Unknown]
  - Muscle atrophy [Unknown]
  - Musculoskeletal disorder [Unknown]
  - Hypertension [Unknown]
  - Presyncope [Unknown]
  - Glycosylated haemoglobin increased [Unknown]
  - Testicular pain [Recovering/Resolving]
  - Dizziness [Recovering/Resolving]
  - Inappropriate schedule of drug administration [Unknown]
  - Panic attack [Unknown]
  - Dizziness [Unknown]
  - Penile ulceration [Unknown]

NARRATIVE: CASE EVENT DATE: 201211
